FAERS Safety Report 20490225 (Version 2)
Quarter: 2022Q1

REPORT INFORMATION
  Report Type: Spontaneous
  Country: US (occurrence: US)
  Receive Date: 20220218
  Receipt Date: 20220324
  Transmission Date: 20220423
  Serious: No
  Sender: FDA-Public Use
  Company Number: US-PFIZER INC-202200124100

PATIENT
  Age: 67 Year
  Sex: Female

DRUGS (1)
  1. GENOTROPIN [Suspect]
     Active Substance: SOMATROPIN
     Dosage: 0.8 MG, DAILY
     Dates: start: 2012

REACTIONS (6)
  - Malaise [Unknown]
  - Device issue [Unknown]
  - Device information output issue [Unknown]
  - Wrong technique in device usage process [Unknown]
  - Device use issue [Unknown]
  - Drug dose omission by device [Unknown]
